FAERS Safety Report 6812872-1 (Version None)
Quarter: 2010Q3

REPORT INFORMATION
  Report Type: 
  Country: None (occurrence: None)
  Receive Date: 20100701
  Receipt Date: 20100623
  Transmission Date: 20110219
  Serious: Yes (Other)
  Sender: FDA-Public Use
  Company Number: GXKR2010US07026

PATIENT
  Age: 32 Year
  Sex: Male

DRUGS (1)
  1. SALBUTAMOL (NGX) [Suspect]
     Dosage: CONTINUOUSLY VIA A NEBULISER

REACTIONS (1)
  - LACTIC ACIDOSIS [None]
